FAERS Safety Report 9892650 (Version 1)
Quarter: 2014Q1

REPORT INFORMATION
  Report Type: Spontaneous
  Country: US (occurrence: US)
  Receive Date: 20140212
  Receipt Date: 20140212
  Transmission Date: 20141002
  Serious: Yes (Other)
  Sender: FDA-Public Use
  Company Number: US-B.I. PHARMACEUTICALS,INC./RIDGEFIELD-2014-BI-05985BP

PATIENT
  Sex: Male

DRUGS (1)
  1. COMBIVENT [Suspect]
     Indication: ASBESTOSIS
     Route: 055

REACTIONS (4)
  - Cardiac failure [Unknown]
  - Cardiac operation [Unknown]
  - Hearing impaired [Unknown]
  - Off label use [Unknown]
